FAERS Safety Report 7998334-7 (Version None)
Quarter: 2011Q4

REPORT INFORMATION
  Report Type: 
  Country: None (occurrence: None)
  Receive Date: 20111221
  Receipt Date: 20110721
  Transmission Date: 20120403
  Serious: No
  Sender: FDA-Public Use
  Company Number: US-GLAXOSMITHKLINE-A0937575A

PATIENT
  Age: 75 Year
  Sex: Female

DRUGS (4)
  1. TOPROL-XL [Concomitant]
  2. SYNTHROID [Concomitant]
  3. LOVAZA [Suspect]
     Indication: BLOOD TRIGLYCERIDES INCREASED
     Dosage: 4CAP FOUR TIMES PER DAY
     Route: 048
     Dates: start: 20110711, end: 20110720
  4. COZAAR [Concomitant]

REACTIONS (3)
  - SKIN IRRITATION [None]
  - PRURITUS [None]
  - EYE SWELLING [None]
